FAERS Safety Report 12448786 (Version 4)
Quarter: 2017Q1

REPORT INFORMATION
  Report Type: Spontaneous
  Country: BR (occurrence: BR)
  Receive Date: 20160608
  Receipt Date: 20170119
  Transmission Date: 20170428
  Serious: Yes (Life-Threatening, Hospitalization, Other)
  Sender: FDA-Public Use
  Company Number: BR-ALEXION PHARMACEUTICALS INC-A201604068

PATIENT
  Age: 28 Year
  Sex: Female

DRUGS (9)
  1. RANITIDINE. [Concomitant]
     Active Substance: RANITIDINE
     Indication: HYPERSENSITIVITY
     Route: 065
  2. PEN-VE-ORAL [Concomitant]
     Active Substance: PENICILLIN V POTASSIUM
     Indication: INFECTION PROPHYLAXIS
     Dosage: UNK
     Route: 048
  3. LORATADINE. [Concomitant]
     Active Substance: LORATADINE
     Indication: PRODUCT USED FOR UNKNOWN INDICATION
     Route: 065
  4. SOLIRIS [Suspect]
     Active Substance: ECULIZUMAB
     Dosage: 900 MG, Q2W
     Route: 042
  5. RANITIDINE. [Concomitant]
     Active Substance: RANITIDINE
     Indication: DYSPHONIA
  6. CLEXANE [Concomitant]
     Active Substance: ENOXAPARIN SODIUM
     Indication: ANTICOAGULANT THERAPY
     Dosage: UNK
     Route: 058
  7. SOLIRIS [Suspect]
     Active Substance: ECULIZUMAB
     Indication: PAROXYSMAL NOCTURNAL HAEMOGLOBINURIA
     Dosage: 600 MG, QW
     Route: 042
     Dates: start: 20141105, end: 20141226
  8. RANITIDINE. [Concomitant]
     Active Substance: RANITIDINE
     Indication: PRURITUS GENERALISED
  9. PREDNISONE. [Concomitant]
     Active Substance: PREDNISONE
     Indication: APLASIA
     Dosage: UNK
     Route: 048

REACTIONS (26)
  - Blood lactate dehydrogenase increased [Recovered/Resolved]
  - Pruritus generalised [Unknown]
  - Vomiting [Unknown]
  - Pelvic pain [Unknown]
  - Anaemia [Recovered/Resolved]
  - Haemolysis [Not Recovered/Not Resolved]
  - Pruritus generalised [Recovered/Resolved]
  - Haptoglobin abnormal [Recovered/Resolved]
  - Aplastic anaemia [Recovered/Resolved]
  - Hepatic vascular thrombosis [Unknown]
  - Abortion spontaneous [Unknown]
  - Abdominal pain [Recovered/Resolved]
  - Allergic cough [Recovered/Resolved]
  - Reticulocyte count abnormal [Recovered/Resolved]
  - Hypersensitivity [Recovered/Resolved]
  - Dysphonia [Recovered/Resolved]
  - Dysphonia [Unknown]
  - Thrombocytopenia [Recovered/Resolved]
  - Pruritus generalised [Recovered/Resolved]
  - Hypersensitivity [Recovered/Resolved]
  - Cough [Unknown]
  - Thrombosis [Unknown]
  - Skin lesion [Recovered/Resolved]
  - Haemoglobinuria [Not Recovered/Not Resolved]
  - Hypersensitivity [Unknown]
  - Drug hypersensitivity [Unknown]

NARRATIVE: CASE EVENT DATE: 201603
